FAERS Safety Report 22964601 (Version 4)
Quarter: 2023Q4

REPORT INFORMATION
  Report Type: Report from Study
  Country: US (occurrence: US)
  Receive Date: 20230921
  Receipt Date: 20231222
  Transmission Date: 20240109
  Serious: No
  Sender: FDA-Public Use
  Company Number: US-002147023-NVSC2023US203867

PATIENT
  Age: 3 Year
  Sex: Male

DRUGS (1)
  1. VIJOICE [Suspect]
     Active Substance: ALPELISIB
     Indication: PIK3CA related overgrowth spectrum
     Dosage: 50 MG, QD
     Route: 048
     Dates: start: 20230411

REACTIONS (9)
  - Scratch [Recovered/Resolved]
  - Cough [Recovered/Resolved]
  - Dyspnoea [Recovered/Resolved]
  - Alopecia [Recovered/Resolved]
  - Pigmentation disorder [Unknown]
  - Oral mucosal eruption [Recovered/Resolved]
  - Dry skin [Recovered/Resolved]
  - Nasopharyngitis [Recovered/Resolved]
  - Product dose omission issue [Recovered/Resolved]

NARRATIVE: CASE EVENT DATE: 20230411
